FAERS Safety Report 8003361-X (Version None)
Quarter: 2011Q4

REPORT INFORMATION
  Report Type: 
  Country: None (occurrence: None)
  Receive Date: 20111222
  Receipt Date: 20111212
  Transmission Date: 20120403
  Serious: Yes (Hospitalization, Other)
  Sender: FDA-Public Use
  Company Number: US-ABBOTT-11P-163-0846962-00

PATIENT
  Sex: Female
  Weight: 103.06 kg

DRUGS (7)
  1. PROTONIX [Suspect]
     Indication: PRODUCT USED FOR UNKNOWN INDICATION
  2. PROCARDIA [Suspect]
     Indication: PRODUCT USED FOR UNKNOWN INDICATION
  3. VICODIN [Suspect]
     Indication: PRODUCT USED FOR UNKNOWN INDICATION
  4. LYRICA [Suspect]
     Dates: start: 20100101
  5. LYRICA [Suspect]
     Indication: FIBROMYALGIA
     Dates: start: 20100101
  6. PAXIL [Concomitant]
     Indication: DEPRESSION
  7. LYRICA [Suspect]

REACTIONS (12)
  - MALAISE [None]
  - DRUG ADMINISTRATION ERROR [None]
  - CONFUSIONAL STATE [None]
  - ABDOMINAL PAIN UPPER [None]
  - DYSPEPSIA [None]
  - VISUAL IMPAIRMENT [None]
  - DYSPNOEA [None]
  - SINUSITIS [None]
  - SWELLING [None]
  - NAUSEA [None]
  - VISION BLURRED [None]
  - ABDOMINAL PAIN [None]
